FAERS Safety Report 8763348 (Version 2)
Quarter: 2015Q2

REPORT INFORMATION
  Report Type: Spontaneous
  Country: US (occurrence: US)
  Receive Date: 20120831
  Receipt Date: 20150415
  Transmission Date: 20150821
  Serious: No
  Sender: FDA-Public Use
  Company Number: US-PFIZER INC-2012212018

PATIENT
  Age: 42 Year
  Sex: Male

DRUGS (1)
  1. SUTENT [Suspect]
     Active Substance: SUNITINIB MALATE
     Indication: ALVEOLAR SOFT PART SARCOMA
     Dosage: 37.5 MG, 1X/DAY
     Dates: start: 20150310

REACTIONS (3)
  - Product use issue [Unknown]
  - Disease progression [Unknown]
  - Alveolar soft part sarcoma [Unknown]
